FAERS Safety Report 24245886 (Version 3)
Quarter: 2024Q4

REPORT INFORMATION
  Report Type: Spontaneous
  Country: FR (occurrence: FR)
  Receive Date: 20240824
  Receipt Date: 20241003
  Transmission Date: 20250114
  Serious: Yes (Other)
  Sender: TEVA
  Company Number: None

PATIENT
  Age: 71 Year
  Sex: Female
  Weight: 65 kg

DRUGS (13)
  1. ALPRAZOLAM [Suspect]
     Active Substance: ALPRAZOLAM
     Indication: Mixed anxiety and depressive disorder
     Dosage: 0.25 MILLIGRAM, QD
     Route: 048
  2. PAROXETINE [Suspect]
     Active Substance: PAROXETINE
     Indication: Mixed anxiety and depressive disorder
     Dosage: 20 MG, QD, PAROXETINE HYDROCHLORIDE ANHYDROUS
     Route: 048
  3. LANSOPRAZOLE [Suspect]
     Active Substance: LANSOPRAZOLE
     Indication: Prophylaxis
     Dosage: 15 MILLIGRAMS, QD(DATE OF MOST RECENT DOSE: OCT2022)
     Route: 048
     Dates: end: 202210
  4. SULFAMETHOXAZOLE\TRIMETHOPRIM [Concomitant]
     Active Substance: SULFAMETHOXAZOLE\TRIMETHOPRIM
     Indication: Antifungal prophylaxis
     Dosage: 3 DOSAGE FORM, 1/WEEK
     Route: 048
     Dates: start: 202111
  5. BRUKINSA [Suspect]
     Active Substance: ZANUBRUTINIB
     Indication: Mantle cell lymphoma
     Dosage: 320 MILLIGRAM, QD
     Route: 048
     Dates: start: 20211129, end: 20220822
  6. BACTRIM [Suspect]
     Active Substance: SULFAMETHOXAZOLE\TRIMETHOPRIM
     Indication: Antifungal prophylaxis
     Dosage: 3 DOSAGE FORM, 1/WEEK, 800/160 MG
     Route: 048
     Dates: start: 202111, end: 20220810
  7. TRIMEBUTINE [Suspect]
     Active Substance: TRIMEBUTINE
     Indication: Constipation
     Dosage: 200 MILLIGRAM, BID
     Route: 048
     Dates: start: 202204, end: 20220822
  8. PROPRANOLOL [Suspect]
     Active Substance: PROPRANOLOL HYDROCHLORIDE
     Indication: Hypertension
     Dosage: 20 MG, QD
     Route: 048
  9. VALACYCLOVIR HYDROCHLORIDE [Suspect]
     Active Substance: VALACYCLOVIR HYDROCHLORIDE
     Indication: Antiviral prophylaxis
     Dosage: 1000 MILLIGRAM, QD
     Route: 048
     Dates: start: 202111, end: 20220810
  10. AZELASTINE [Suspect]
     Active Substance: AZELASTINE
     Indication: Hypersensitivity
     Dosage: 2 DOSAGE FORM, QD
     Route: 045
  11. Alprim [Concomitant]
     Indication: Antifungal prophylaxis
     Dosage: 3 DOSAGE FORM, 1/WEEK
     Dates: start: 202111, end: 20220810
  12. RITUXIMAB [Suspect]
     Active Substance: RITUXIMAB
     Indication: Mantle cell lymphoma
     Dosage: 640 MILLIGRAM, MONTHLY
     Route: 042
     Dates: start: 20211119
  13. RITUXIMAB [Suspect]
     Active Substance: RITUXIMAB
     Indication: Mantle cell lymphoma
     Dosage: 640 MILLIGRAM, MONTHLY
     Route: 042
     Dates: start: 20211129, end: 202206

REACTIONS (1)
  - Diarrhoea [Recovered/Resolved]

NARRATIVE: CASE EVENT DATE: 20220502
